FAERS Safety Report 22528699 (Version 1)
Quarter: 2023Q2

REPORT INFORMATION
  Report Type: Spontaneous
  Country: US (occurrence: None)
  Receive Date: 20230607
  Receipt Date: 20230607
  Transmission Date: 20230722
  Serious: No
  Sender: FDA-Public Use
  Company Number: US-ROCHE-3357915

PATIENT
  Sex: Female
  Weight: 54 kg

DRUGS (3)
  1. OCREVUS [Suspect]
     Active Substance: OCRELIZUMAB
     Indication: Relapsing-remitting multiple sclerosis
     Dosage: DAY 1 DOSE
     Route: 042
     Dates: start: 20230310
  2. OCREVUS [Suspect]
     Active Substance: OCRELIZUMAB
     Route: 042
     Dates: start: 20230526
  3. BACLOFEN [Concomitant]
     Active Substance: BACLOFEN

REACTIONS (2)
  - Urinary tract infection [Unknown]
  - Herpes virus infection [Unknown]
